FAERS Safety Report 16857373 (Version 2)
Quarter: 2021Q2

REPORT INFORMATION
  Report Type: Spontaneous
  Country: CA (occurrence: CA)
  Receive Date: 20190926
  Receipt Date: 20210407
  Transmission Date: 20210716
  Serious: Yes (Disabling)
  Sender: FDA-Public Use
  Company Number: CA-PFIZER INC-2019413331

PATIENT
  Age: 68 Year
  Sex: Female

DRUGS (2)
  1. LEVOFLOXACIN TEVA [LEVOFLOXACIN] [Suspect]
     Active Substance: LEVOFLOXACIN
     Indication: INFECTION
     Dosage: 750 MG, 1X/DAY
  2. PREDNISONE. [Concomitant]
     Active Substance: PREDNISONE
     Dosage: UNK

REACTIONS (4)
  - Arthralgia [Unknown]
  - Joint swelling [Unknown]
  - Infection [Unknown]
  - Tendonitis [Unknown]
